FAERS Safety Report 23205627 (Version 2)
Quarter: 2023Q4

REPORT INFORMATION
  Report Type: Spontaneous
  Country: EG (occurrence: EG)
  Receive Date: 20231120
  Receipt Date: 20231205
  Transmission Date: 20240110
  Serious: Yes (Other)
  Sender: FDA-Public Use
  Company Number: EG-BAYER-2023A163241

PATIENT
  Age: 50 Year
  Sex: Female

DRUGS (1)
  1. EYLEA [Suspect]
     Active Substance: AFLIBERCEPT
     Indication: Product used for unknown indication
     Dosage: UNK, ONCE , SOLUTION FOR INJECTION, 40 MG/ML
     Dates: start: 20231101, end: 20231101

REACTIONS (3)
  - Blindness unilateral [Unknown]
  - Inflammation [Unknown]
  - Endophthalmitis [Unknown]

NARRATIVE: CASE EVENT DATE: 20231101
